FAERS Safety Report 16859645 (Version 2)
Quarter: 2019Q4

REPORT INFORMATION
  Report Type: Spontaneous
  Country: JP (occurrence: JP)
  Receive Date: 20190927
  Receipt Date: 20191010
  Transmission Date: 20200122
  Serious: Yes (Life-Threatening, Hospitalization, Other)
  Sender: FDA-Public Use
  Company Number: JP-TEVA-464032ISR

PATIENT
  Age: 74 Year
  Sex: Female
  Weight: 42.5 kg

DRUGS (9)
  1. LANSOPRAZOLE. [Suspect]
     Active Substance: LANSOPRAZOLE
     Indication: GASTROINTESTINAL HAEMORRHAGE
     Dosage: 30 MILLIGRAM DAILY;
     Route: 048
     Dates: start: 20090121, end: 20110702
  2. DIOVAN [Concomitant]
     Active Substance: VALSARTAN
     Dosage: 80 MILLIGRAM DAILY;
  3. URSODEOXYCHOLIC ACID [Concomitant]
     Active Substance: URSODIOL
     Dosage: 100 MILLIGRAM DAILY; 100 MG/DAY (2 TABLETS 3X DAILY)
  4. PARACETAMOL [Concomitant]
     Active Substance: ACETAMINOPHEN
     Dosage: 1 GRAM DAILY; 1 G/DAY (1 PACKET OF 50% 3X DAILY)
  5. CALBLOCK [Concomitant]
     Active Substance: AZELNIDIPINE
     Dosage: 16 MILLIGRAM DAILY;
  6. LANSOPRAZOLE. [Suspect]
     Active Substance: LANSOPRAZOLE
     Indication: GASTRITIS EROSIVE
     Route: 065
     Dates: start: 20060926, end: 20061122
  7. ALFAROL [Concomitant]
     Active Substance: ALFACALCIDOL
     Dosage: .25 MILLIGRAM DAILY; 0.25 MG/DAY (2 TABLETS)
  8. LOSARTAN AND HYDROCHLOROTHIAZIDE [Concomitant]
     Active Substance: HYDROCHLOROTHIAZIDE\LOSARTAN POTASSIUM
  9. EVISTA [Concomitant]
     Active Substance: RALOXIFENE HYDROCHLORIDE
     Dosage: 60 MILLIGRAM DAILY;

REACTIONS (4)
  - Hepatic encephalopathy [Recovered/Resolved]
  - Weight decreased [Unknown]
  - Colitis microscopic [Recovered/Resolved]
  - Diarrhoea [Recovered/Resolved]

NARRATIVE: CASE EVENT DATE: 201002
